FAERS Safety Report 4760128-3 (Version None)
Quarter: 2005Q3

REPORT INFORMATION
  Report Type: 
  Country: None (occurrence: None)
  Receive Date: 20050902
  Receipt Date: 20050622
  Transmission Date: 20060218
  Serious: No
  Sender: FDA-Public Use
  Company Number: US-GLAXOSMITHKLINE-A0563823A

PATIENT
  Age: 75 Year
  Sex: Male

DRUGS (5)
  1. REQUIP [Suspect]
     Indication: PARKINSON'S DISEASE
     Dosage: 25MG PER DAY
     Route: 048
  2. PLAVIX [Concomitant]
  3. LIPITOR [Concomitant]
  4. AVAPRO [Concomitant]
  5. SINEMET [Concomitant]

REACTIONS (1)
  - SOMNOLENCE [None]
